FAERS Safety Report 4445304-1 (Version None)
Quarter: 2004Q3

REPORT INFORMATION
  Report Type: 
  Country: None (occurrence: None)
  Receive Date: 20040903
  Receipt Date: 20040324
  Transmission Date: 20050211
  Serious: Yes (Hospitalization)
  Sender: FDA-Public Use
  Company Number: ZANA001342

PATIENT
  Age: 65 Year
  Sex: Male

DRUGS (3)
  1. TIZANIDINE HCL [Suspect]
     Indication: BACK PAIN
     Dosage: 3 MG ORAL
     Route: 048
     Dates: start: 20000228, end: 20000229
  2. LOXONIN (LOXOPROFEN SODIUM) [Suspect]
     Indication: BACK PAIN
     Dosage: 180 MG
     Route: 048
     Dates: start: 20000228, end: 20000229
  3. MUCOSTA(REBAMIPIDE) [Suspect]
     Indication: GASTRITIS
     Dosage: 300 MG ORAL
     Route: 048
     Dates: start: 20000228, end: 20000229

REACTIONS (2)
  - BLOOD PRESSURE SYSTOLIC DECREASED [None]
  - HEART RATE DECREASED [None]
